FAERS Safety Report 7703414-7 (Version None)
Quarter: 2011Q3

REPORT INFORMATION
  Report Type: 
  Country: None (occurrence: None)
  Receive Date: 20110823
  Receipt Date: 20110823
  Transmission Date: 20111222
  Serious: Yes (Congenital Anomaly)
  Sender: FDA-Public Use
  Company Number: None

PATIENT
  Age: 0 Month
  Sex: Male
  Weight: 41.73 kg

DRUGS (1)
  1. NEXIUM [Suspect]
     Indication: DYSPEPSIA
     Dosage: 1 CAPSULE
     Route: 048
     Dates: start: 20110207, end: 20110307

REACTIONS (2)
  - MATERNAL DRUGS AFFECTING FOETUS [None]
  - FALLOT'S TETRALOGY [None]
